FAERS Safety Report 9644059 (Version 1)
Quarter: 2013Q4

REPORT INFORMATION
  Report Type: Spontaneous
  Country: US (occurrence: US)
  Receive Date: 20131024
  Receipt Date: 20131024
  Transmission Date: 20140711
  Serious: Yes (Hospitalization)
  Sender: FDA-Public Use
  Company Number: US-MYLANLABS-2013S1023259

PATIENT
  Age: 39 Year
  Sex: Female

DRUGS (1)
  1. MORPHINE [Suspect]
     Indication: ANALGESIC THERAPY
     Dosage: PATIENT-CONTROLLED ADMINISTRATION
     Route: 065

REACTIONS (2)
  - Palatal oedema [Recovering/Resolving]
  - Pruritus [Recovering/Resolving]
